FAERS Safety Report 25380247 (Version 1)
Quarter: 2025Q2

REPORT INFORMATION
  Report Type: Spontaneous
  Country: US (occurrence: US)
  Receive Date: 20250530
  Receipt Date: 20250530
  Transmission Date: 20250716
  Serious: No
  Sender: GILEAD
  Company Number: US-GILEAD-2025-0715219

PATIENT
  Age: 29 Year
  Sex: Male

DRUGS (1)
  1. LENACAPAVIR [Suspect]
     Active Substance: LENACAPAVIR
     Indication: HIV infection
     Route: 065

REACTIONS (2)
  - Intentional dose omission [Unknown]
  - Intentional product use issue [Unknown]
